FAERS Safety Report 5013161-0 (Version None)
Quarter: 2006Q2

REPORT INFORMATION
  Report Type: 
  Country: None (occurrence: None)
  Receive Date: 20060530
  Receipt Date: 20060313
  Transmission Date: 20061013
  Serious: No
  Sender: FDA-Public Use
  Company Number: US-GLAXOSMITHKLINE-A0597309A

PATIENT
  Sex: Female

DRUGS (2)
  1. WELLBUTRIN XL [Suspect]
     Indication: DEPRESSIVE SYMPTOM
     Route: 048
  2. WELLBUTRIN SR [Concomitant]
     Indication: DEPRESSIVE SYMPTOM
     Dosage: 200MG IN THE MORNING
     Route: 048

REACTIONS (1)
  - INSOMNIA [None]
